FAERS Safety Report 17450942 (Version 2)
Quarter: 2020Q1

REPORT INFORMATION
  Report Type: Spontaneous
  Country: US (occurrence: US)
  Receive Date: 20200224
  Receipt Date: 20200302
  Transmission Date: 20200409
  Serious: No
  Sender: FDA-Public Use
  Company Number: US-GLAXOSMITHKLINE-US2020026935

PATIENT
  Sex: Female

DRUGS (1)
  1. FLOVENT [Suspect]
     Active Substance: FLUTICASONE PROPIONATE
     Indication: PRODUCT USED FOR UNKNOWN INDICATION
     Dosage: 2 PUFF(S), BID
     Route: 065
     Dates: start: 20200213

REACTIONS (8)
  - Drug intolerance [Unknown]
  - Burning sensation [Unknown]
  - Wrong technique in device usage process [Unknown]
  - Cough [Not Recovered/Not Resolved]
  - Tremor [Recovered/Resolved]
  - Pyrexia [Recovered/Resolved]
  - Feeling abnormal [Unknown]
  - Erythema [Unknown]
